FAERS Safety Report 5238332-X (Version None)
Quarter: 2007Q1

REPORT INFORMATION
  Report Type: 
  Country: None (occurrence: None)
  Receive Date: 20070212
  Receipt Date: 20070212
  Transmission Date: 20070707
  Serious: Yes (Other)
  Sender: FDA-Public Use
  Company Number: None

PATIENT
  Age: 12 Year
  Sex: Female
  Weight: 43.0917 kg

DRUGS (1)
  1. DUAC TOPICAL GEL  CLINDAMYCIN 1% / BENZOYL STIEFEL LABORATORIES [Suspect]
     Indication: ACNE
     Dosage: SMALL AMOUNT ONCE/DAY-BEDTIME TOP
     Route: 061
     Dates: start: 20060907, end: 20070210

REACTIONS (3)
  - APPLICATION SITE ERYTHEMA [None]
  - APPLICATION SITE IRRITATION [None]
  - PHARMACEUTICAL PRODUCT COMPLAINT [None]
